FAERS Safety Report 6902764-1 (Version None)
Quarter: 2010Q3

REPORT INFORMATION
  Report Type: 
  Country: None (occurrence: None)
  Receive Date: 20100803
  Receipt Date: 20080730
  Transmission Date: 20110219
  Serious: No
  Sender: FDA-Public Use
  Company Number: US-PFIZER INC-2008064262

PATIENT
  Sex: Male
  Weight: 97.2 kg

DRUGS (6)
  1. LYRICA [Suspect]
     Indication: NEURALGIA
     Route: 048
     Dates: start: 20080101, end: 20080601
  2. LYRICA [Suspect]
     Indication: NEUROPATHY PERIPHERAL
  3. VICODIN [Concomitant]
  4. ZOCOR [Concomitant]
  5. ZETIA [Concomitant]
  6. HYDROCHLOROTHIAZIDE [Concomitant]

REACTIONS (6)
  - BLOOD TESTOSTERONE DECREASED [None]
  - DIZZINESS [None]
  - FEELING ABNORMAL [None]
  - SLEEP DISORDER [None]
  - VITAMIN B12 DECREASED [None]
  - WEIGHT INCREASED [None]
